FAERS Safety Report 8868246 (Version 1)
Quarter: 2012Q4

REPORT INFORMATION
  Report Type: 
  Country: US (occurrence: US)
  Receive Date: 20121025
  Receipt Date: 20121025
  Transmission Date: 20130627
  Serious: No
  Sender: FDA-Public Use
  Company Number: US-AMGEN-USASP2012012914

PATIENT
  Age: 78 Year
  Sex: Female
  Weight: 91.16 kg

DRUGS (29)
  1. ENBREL [Suspect]
     Indication: PRODUCT USED FOR UNKNOWN INDICATION
     Dosage: 50 mg, qwk
     Route: 058
  2. SINGULAIR [Concomitant]
     Dosage: 10 mg, UNK
  3. PANTOPRAZOLE [Concomitant]
     Dosage: 20 mg, UNK
  4. CELEBREX [Concomitant]
     Dosage: 200 mg, UNK
  5. FUROSEMIDE [Concomitant]
     Dosage: 20 mg, UNK
  6. LORATADINE [Concomitant]
     Dosage: 10 mg, UNK
  7. PROVENTIL                          /00139501/ [Concomitant]
     Dosage: 900 mug, UNK
  8. LOVASTATIN [Concomitant]
     Dosage: 20 mg, UNK
  9. METFORMIN [Concomitant]
     Dosage: 500 mg, UNK
  10. ALENDRONATE [Concomitant]
     Dosage: 35 mg, UNK
  11. GLIPIZIDE [Concomitant]
     Dosage: 10 mg, UNK
  12. WELLBUTRIN [Concomitant]
     Dosage: 75 mg, UNK
  13. ADVAIR HFA [Concomitant]
  14. LEVOTHYROXIN [Concomitant]
     Dosage: 25 mug, UNK
  15. KLOR-CON [Concomitant]
  16. LOSARTAN POTASICO [Concomitant]
     Dosage: 100 mg, UNK
  17. DILTIAZEM [Concomitant]
     Dosage: 240 mg, UNK
  18. NIACIN [Concomitant]
     Dosage: 125 mg, UNK
  19. FISH OIL [Concomitant]
  20. VESICARE [Concomitant]
     Dosage: 5 mg, UNK
  21. VITAMIN B12                        /00056201/ [Concomitant]
  22. MULTIVITAMIN                       /00097801/ [Concomitant]
  23. ASPIRIN [Concomitant]
     Dosage: 81 mg, UNK
  24. NORCO [Concomitant]
  25. GLUCOSAMINE [Concomitant]
  26. CHONDROITIN [Concomitant]
  27. VITAMIN D3 [Concomitant]
  28. POTASSIUM [Concomitant]
     Dosage: 75 mg, UNK
  29. QVAR [Concomitant]

REACTIONS (4)
  - Sneezing [Unknown]
  - Urinary incontinence [Unknown]
  - Cough [Unknown]
  - Bronchitis [Unknown]
